FAERS Safety Report 21072253 (Version 1)
Quarter: 2022Q3

REPORT INFORMATION
  Report Type: Spontaneous
  Country: US (occurrence: US)
  Receive Date: 20220712
  Receipt Date: 20220712
  Transmission Date: 20221027
  Serious: No
  Sender: FDA-Public Use
  Company Number: US-FOUNDATIONCONSUMERHC-2022-US-007490

PATIENT
  Age: 25 Year
  Sex: Female
  Weight: 84.37 kg

DRUGS (3)
  1. TAKE ACTION [Suspect]
     Active Substance: LEVONORGESTREL
     Indication: Post coital contraception
     Dosage: PLAN B 1.5MG ON 29-MAR-2022 AND TAKE ACTION 1.5MG ON 30-MAR-2022
     Route: 048
     Dates: start: 20220329, end: 20220330
  2. cigars [Concomitant]
     Dosage: SMOKES DAILY
     Route: 055
  3. Women^s One A Day Gummies [Concomitant]

REACTIONS (3)
  - Dysmenorrhoea [Not Recovered/Not Resolved]
  - Condition aggravated [Not Recovered/Not Resolved]
  - Vomiting [Recovered/Resolved]

NARRATIVE: CASE EVENT DATE: 20220329
